FAERS Safety Report 15669964 (Version 1)
Quarter: 2018Q4

REPORT INFORMATION
  Report Type: Spontaneous
  Country: DE (occurrence: DE)
  Receive Date: 20181129
  Receipt Date: 20181129
  Transmission Date: 20190205
  Serious: Yes (Death)
  Sender: FDA-Public Use
  Company Number: DE-BRACCO-2018DE05923

PATIENT
  Age: 3 Month
  Sex: Male

DRUGS (1)
  1. SOLUTRAST [Suspect]
     Active Substance: IOPAMIDOL
     Indication: ANGIOGRAM
     Dosage: 20 ML, SINGLE

REACTIONS (6)
  - Sepsis [Fatal]
  - Volvulus of small bowel [Fatal]
  - Multiple organ dysfunction syndrome [Fatal]
  - Gastrointestinal necrosis [Fatal]
  - Prescribed overdose [Unknown]
  - Gastrointestinal hypermotility [Unknown]
